FAERS Safety Report 9878501 (Version 1)
Quarter: 2014Q1

REPORT INFORMATION
  Report Type: Spontaneous
  Country: ES (occurrence: ES)
  Receive Date: 20140206
  Receipt Date: 20140206
  Transmission Date: 20141002
  Serious: Yes (Other)
  Sender: FDA-Public Use
  Company Number: ES-009507513-1401ESP014682

PATIENT
  Age: 40 Year
  Sex: Female

DRUGS (3)
  1. NUVARING [Suspect]
     Indication: CONTRACEPTION
     Dosage: UNK
     Route: 067
     Dates: start: 201312
  2. NOLOTIL [Interacting]
     Indication: TOOTH DISORDER
     Dosage: UNK
     Dates: start: 201401, end: 201401
  3. NOLOTIL [Interacting]
     Dosage: UNK
     Dates: start: 201401, end: 201401

REACTIONS (5)
  - Dermatitis allergic [Recovered/Resolved]
  - Dermatitis allergic [Recovered/Resolved]
  - Drug interaction [Recovered/Resolved]
  - Tooth disorder [Recovered/Resolved]
  - Tooth disorder [Recovered/Resolved]
